FAERS Safety Report 4498826-1 (Version None)
Quarter: 2004Q4

REPORT INFORMATION
  Report Type: 
  Country: None (occurrence: None)
  Receive Date: 20041110
  Receipt Date: 20041110
  Transmission Date: 20050328
  Serious: Yes (Life-Threatening)
  Sender: FDA-Public Use
  Company Number: None

PATIENT
  Age: 59 Year
  Sex: Female
  Weight: 75 kg

DRUGS (2)
  1. IRINOTECAN 65 MG/M2 [Suspect]
     Indication: GASTRIC CANCER
     Dosage: 112MG, X T , IV
     Route: 042
     Dates: start: 20040701, end: 20040819
  2. CISPLATIN [Suspect]
     Indication: GASTRIC CANCER
     Dosage: 52 MG X T, IV
     Route: 042
     Dates: start: 20040701, end: 20040819

REACTIONS (5)
  - BONE MARROW DEPRESSION [None]
  - CONDUCTIVE DEAFNESS [None]
  - FATIGUE [None]
  - HAEMOGLOBIN DECREASED [None]
  - MUCOSAL INFLAMMATION [None]
